FAERS Safety Report 17808090 (Version 2)
Quarter: 2020Q2

REPORT INFORMATION
  Report Type: Report from Study
  Country: US (occurrence: US)
  Receive Date: 20200520
  Receipt Date: 20200528
  Transmission Date: 20200714
  Serious: Yes (Death, Life-Threatening, Hospitalization, Other)
  Sender: FDA-Public Use
  Company Number: US-SA-2020SA096379

PATIENT
  Age: 61 Year
  Sex: Male

DRUGS (20)
  1. IVERMECTIN. [Concomitant]
     Active Substance: IVERMECTIN
     Indication: STRONGYLOIDIASIS
     Dosage: 21 MG, QD
     Route: 048
     Dates: start: 20200408, end: 20200409
  2. IVERMECTIN. [Concomitant]
     Active Substance: IVERMECTIN
     Indication: PROPHYLAXIS
  3. METHYLPREDNISOLONE SODIUM SUCCINATE. [Concomitant]
     Active Substance: METHYLPREDNISOLONE SODIUM SUCCINATE
     Indication: PRODUCT USED FOR UNKNOWN INDICATION
     Dosage: 60 MG, Q12H
     Route: 042
     Dates: start: 20200405, end: 20200406
  4. SARILUMAB [Suspect]
     Active Substance: SARILUMAB
     Indication: COVID-19
     Dosage: REGN MAB1 400 MG  1X
     Route: 042
     Dates: start: 20200406, end: 20200406
  5. METHYLPREDNISOLONE. [Concomitant]
     Active Substance: METHYLPREDNISOLONE
     Indication: INFLAMMATION
     Dosage: 60 MG, QD
     Route: 042
     Dates: start: 20200409, end: 20200413
  6. NOREPINEPHRINE. [Concomitant]
     Active Substance: NOREPINEPHRINE
     Indication: ARRHYTHMIA
  7. VASOPRESSIN. [Concomitant]
     Active Substance: VASOPRESSIN
     Indication: HYPOTENSION
     Dosage: 0.04 UNITES/MIN CONTINUOUS INFUSION
     Route: 042
     Dates: start: 20200407, end: 20200412
  8. NORVASC [Concomitant]
     Active Substance: AMLODIPINE BESYLATE
     Indication: ARRHYTHMIA
     Dosage: 10 MG, QD
     Route: 048
     Dates: start: 20200403, end: 20200406
  9. ACETAMINOPHEN. [Concomitant]
     Active Substance: ACETAMINOPHEN
     Indication: PYREXIA
     Dosage: 650 MG, PRN
     Route: 054
     Dates: start: 20200408, end: 20200414
  10. ASPIRIN [ACETYLSALICYLIC ACID] [Concomitant]
     Active Substance: ASPIRIN
     Indication: HYPERTENSION
     Dosage: 81 MG, QD
     Route: 048
     Dates: start: 20200403, end: 20200412
  11. AMIODARONE [Concomitant]
     Active Substance: AMIODARONE
     Indication: ARRHYTHMIA
     Dosage: 1 MG/MIN CONTINUOUS INFUSION
     Route: 042
     Dates: start: 20200407, end: 20200408
  12. CEFTRIAXONE. [Concomitant]
     Active Substance: CEFTRIAXONE
     Indication: COVID-19 PNEUMONIA
     Dosage: 1000 MG, QD
     Route: 042
     Dates: start: 20200402, end: 20200409
  13. NOREPINEPHRINE. [Concomitant]
     Active Substance: NOREPINEPHRINE
     Indication: HYPOTENSION
     Dosage: 1-30 MCG/MIN CONTINUOUS INFUSION
     Route: 042
     Dates: start: 20200411, end: 20200414
  14. SARILUMAB [Suspect]
     Active Substance: SARILUMAB
     Dosage: 1X, REGN88 OR PLACEBO, 200 MG OR 400 MG SINGLE DOSE FOR 1 HOUR
     Route: 042
     Dates: start: 20200413, end: 20200413
  15. HYDROXYCHLOROQUINE [Concomitant]
     Active Substance: HYDROXYCHLOROQUINE
     Indication: COVID-19
     Dosage: 400 MG, Q12H
     Route: 048
     Dates: start: 20200402, end: 20200402
  16. NEO-SYNEPHRINE HYDROCHLORIDE [Concomitant]
     Active Substance: PHENYLEPHRINE HYDROCHLORIDE
     Indication: ARRHYTHMIA
  17. AZITHROMYCIN ANHYDROUS. [Concomitant]
     Active Substance: AZITHROMYCIN ANHYDROUS
     Indication: COVID-19
     Dosage: 500 MG, QD
     Route: 048
     Dates: start: 20200402, end: 20200402
  18. HYDROXYCHLOROQUINE [Concomitant]
     Active Substance: HYDROXYCHLOROQUINE
     Dosage: 400 MG, QD
     Route: 048
     Dates: start: 20200402, end: 20200407
  19. DOXYCYCLINE. [Concomitant]
     Active Substance: DOXYCYCLINE
     Indication: COVID-19 PNEUMONIA
     Dosage: 100 MG, BID
     Route: 048
     Dates: start: 20200404, end: 20200409
  20. NEO-SYNEPHRINE HYDROCHLORIDE [Concomitant]
     Active Substance: PHENYLEPHRINE HYDROCHLORIDE
     Indication: HYPOTENSION
     Dosage: 100-400 MCG/MIN CONTINUOUS INFUSION
     Route: 042
     Dates: start: 20200413, end: 20200414

REACTIONS (6)
  - Alanine aminotransferase increased [Not Recovered/Not Resolved]
  - Acute kidney injury [Not Recovered/Not Resolved]
  - Shock [Fatal]
  - Aspartate aminotransferase increased [Not Recovered/Not Resolved]
  - Respiratory failure [Not Recovered/Not Resolved]
  - Fungaemia [Not Recovered/Not Resolved]

NARRATIVE: CASE EVENT DATE: 20200406
